FAERS Safety Report 5528813-3 (Version None)
Quarter: 2007Q4

REPORT INFORMATION
  Report Type: 
  Country: None (occurrence: None)
  Receive Date: 20071129
  Receipt Date: 20071127
  Transmission Date: 20080405
  Serious: Yes (Other)
  Sender: FDA-Public Use
  Company Number: US-RB-008633-07

PATIENT
  Age: 31 Year
  Sex: Female

DRUGS (1)
  1. SUBOXONE [Suspect]
     Dosage: DOSE UNKNOWN
     Route: 065
     Dates: start: 20070301, end: 20070520

REACTIONS (1)
  - SUICIDE ATTEMPT [None]
